FAERS Safety Report 19371208 (Version 3)
Quarter: 2022Q1

REPORT INFORMATION
  Report Type: Spontaneous
  Country: JP (occurrence: JP)
  Receive Date: 20210603
  Receipt Date: 20220207
  Transmission Date: 20220423
  Serious: Yes (Hospitalization, Other)
  Sender: FDA-Public Use
  Company Number: JP-LUPIN PHARMACEUTICALS INC.-2021-08443

PATIENT
  Age: 38 Year
  Sex: Female

DRUGS (5)
  1. LEVOFLOXACIN [Suspect]
     Active Substance: LEVOFLOXACIN
     Indication: Product used for unknown indication
     Dosage: UNK
     Route: 065
  2. DICLOFENAC [Suspect]
     Active Substance: DICLOFENAC
     Indication: Product used for unknown indication
     Dosage: UNK
     Route: 065
  3. AMPICILLIN SODIUM [Suspect]
     Active Substance: AMPICILLIN SODIUM
     Indication: Product used for unknown indication
     Dosage: UNK
     Route: 065
  4. CHLORPHENIRAMINE [Suspect]
     Active Substance: CHLORPHENIRAMINE
     Indication: Product used for unknown indication
     Dosage: UNK
     Route: 065
  5. PANTOPRAZOLE [Suspect]
     Active Substance: PANTOPRAZOLE
     Indication: Product used for unknown indication
     Dosage: UNK
     Route: 065

REACTIONS (2)
  - Drug reaction with eosinophilia and systemic symptoms [Not Recovered/Not Resolved]
  - Leukoderma [Unknown]
